FAERS Safety Report 6340282-2 (Version None)
Quarter: 2009Q3

REPORT INFORMATION
  Report Type: 
  Country: None (occurrence: None)
  Receive Date: 20090902
  Receipt Date: 20090819
  Transmission Date: 20100115
  Serious: Yes (Other)
  Sender: FDA-Public Use
  Company Number: CAP09000206

PATIENT
  Age: 56 Year
  Sex: Female

DRUGS (4)
  1. DIDROCAL           (ETIDRONATE DISODIUM/CALCIUM CARBONATE CYCLICAL) [Suspect]
     Indication: OSTEOPOROSIS PROPHYLAXIS
     Dosage: ORAL
     Route: 048
     Dates: start: 20070101, end: 20090101
  2. ACCUPRO (QUINAPRIL HYDROCHLORIDE) [Concomitant]
  3. CRESTOR [Concomitant]
  4. SYNTHROID [Concomitant]

REACTIONS (2)
  - BONE DENSITY DECREASED [None]
  - BREAST CANCER FEMALE [None]
